FAERS Safety Report 8574469-5 (Version None)
Quarter: 2012Q3

REPORT INFORMATION
  Report Type: 
  Country: None (occurrence: None)
  Receive Date: 20120806
  Receipt Date: 20111010
  Transmission Date: 20120928
  Serious: No
  Sender: FDA-Public Use
  Company Number: US-ABBOTT-11P-163-0862789-00

PATIENT
  Sex: Female
  Weight: 49.032 kg

DRUGS (3)
  1. DEPAKOTE ER [Suspect]
     Indication: AFFECTIVE DISORDER
     Dosage: 750MG DAILY, 250MG, 1 IN AM 2 IN PM
     Route: 048
     Dates: start: 20110401, end: 20110701
  2. WELLBUTRIN [Concomitant]
     Indication: POSTPARTUM DEPRESSION
  3. ZOLOFT [Concomitant]
     Indication: POSTPARTUM DEPRESSION

REACTIONS (3)
  - ALOPECIA [None]
  - FEELING ABNORMAL [None]
  - TREMOR [None]
